FAERS Safety Report 16661832 (Version 19)
Quarter: 2022Q4

REPORT INFORMATION
  Report Type: Report from Study
  Country: US (occurrence: US)
  Receive Date: 20190802
  Receipt Date: 20221129
  Transmission Date: 20230113
  Serious: Yes (Hospitalization, Other)
  Sender: FDA-Public Use
  Company Number: US-PFIZER INC-2019313322

PATIENT
  Sex: Male
  Weight: 119 kg

DRUGS (11)
  1. LYRICA [Suspect]
     Active Substance: PREGABALIN
     Indication: Pain
     Dosage: 300 MG, DAILY (100 MG IN MORNING AND 200 MG AT NIGHT)
     Route: 065
     Dates: start: 2016
  2. LYRICA [Suspect]
     Active Substance: PREGABALIN
     Indication: Restless legs syndrome
     Dosage: 600 MG, DAILY (TWO 100 MG IN THE MORNING AND FOUR 100 MG AT BED TIME)
     Route: 048
  3. LYRICA [Suspect]
     Active Substance: PREGABALIN
     Indication: Back pain
     Dosage: 300 MG, DAILY (6 CAPSULES)
     Route: 048
     Dates: start: 20170628
  4. LYRICA [Suspect]
     Active Substance: PREGABALIN
     Indication: Trigeminal neuralgia
     Dosage: 300 MG, DAILY (100 MG IN MORNING AND 200 MG AT NIGHT)
     Route: 048
  5. LYRICA [Suspect]
     Active Substance: PREGABALIN
     Indication: Back pain
     Dosage: 50 MG, 2X/DAY (1 CAP ORAL TWICE A DAY)
     Route: 048
  6. LYRICA [Suspect]
     Active Substance: PREGABALIN
     Indication: Neuropathy peripheral
     Dosage: 300 MG, DAILY (50MG CAPSULES, 2 CAPSULES  IN THE MORNING AND 4 CAPSULES AT NIGHT)
     Route: 048
  7. LYRICA [Suspect]
     Active Substance: PREGABALIN
     Indication: Pain prophylaxis
     Dosage: 300 MG DAILY (50 MG 6 CAPSULES ORALLY TWO IN AM AND 4 EVERY BEDTIME)
     Route: 048
  8. LYRICA [Suspect]
     Active Substance: PREGABALIN
     Dosage: 50 MG, 3X/DAY
     Route: 048
  9. XTAMPZA ER [Concomitant]
     Active Substance: OXYCODONE
     Indication: Pain
     Dosage: 9 MG, 2X/DAY (9 MG EVERY 12 HOURS)
     Route: 048
     Dates: start: 2020
  10. INSULIN NOS [Concomitant]
     Active Substance: INSULIN NOS
     Indication: Product used for unknown indication
     Dosage: UNK
     Route: 065
  11. FETZIMA [Concomitant]
     Active Substance: LEVOMILNACIPRAN HYDROCHLORIDE
     Indication: Pain prophylaxis
     Dosage: 120 MG, 1X/DAY
     Route: 065

REACTIONS (13)
  - Withdrawal syndrome [Unknown]
  - Myocardial infarction [Unknown]
  - Loss of consciousness [Recovered/Resolved]
  - Hypersensitivity [Recovered/Resolved]
  - Dyspnoea [Recovered/Resolved]
  - Pharyngeal swelling [Recovered/Resolved]
  - Swollen tongue [Recovered/Resolved]
  - Yellow skin [Recovered/Resolved]
  - Illness [Recovered/Resolved]
  - Diabetes mellitus [Unknown]
  - Product dose omission issue [Unknown]
  - Memory impairment [Unknown]
  - Panic reaction [Unknown]
